FAERS Safety Report 5155290-7 (Version None)
Quarter: 2006Q4

REPORT INFORMATION
  Report Type: 
  Country: None (occurrence: None)
  Receive Date: 20061121
  Receipt Date: 20061018
  Transmission Date: 20070319
  Serious: Yes (Death, Life-Threatening, Hospitalization, Other)
  Sender: FDA-Public Use
  Company Number: BR-AVENTIS-200615328EU

PATIENT
  Age: 84 Year
  Sex: Female

DRUGS (63)
  1. ENOXAPARIN SODIUM [Suspect]
     Indication: THROMBOSIS PROPHYLAXIS
     Route: 058
     Dates: start: 20061001, end: 20061003
  2. METOCLOPRAMIDE [Concomitant]
     Indication: DRUG USE FOR UNKNOWN INDICATION
     Dates: start: 20061002, end: 20061002
  3. OMEPRAZOLE [Concomitant]
     Indication: DUODENAL ULCER
     Dates: start: 20061002
  4. OMEPRAZOLE [Concomitant]
     Dates: start: 20051201
  5. CEFAZOLIN [Concomitant]
     Indication: DRUG USE FOR UNKNOWN INDICATION
     Dates: start: 20061002, end: 20061003
  6. TRAMADOL HCL [Concomitant]
     Indication: ANALGESIC THERAPY
     Dates: start: 20061002
  7. TYLEX                              /00020001/ [Concomitant]
     Indication: ANALGESIC EFFECT
     Dates: start: 20061002
  8. TYLEX                              /00020001/ [Concomitant]
     Dates: start: 20061002, end: 20061002
  9. TYLEX                              /00020001/ [Concomitant]
     Dates: start: 20061003, end: 20061003
  10. TYLEX                              /00020001/ [Concomitant]
     Dates: start: 20061005, end: 20061005
  11. TYLEX                              /00020001/ [Concomitant]
     Dates: start: 20061004, end: 20061004
  12. TYLEX                              /00020001/ [Concomitant]
     Dates: start: 20061006, end: 20061006
  13. RIVOTRIL [Concomitant]
     Indication: SLEEP DISORDER
     Dates: start: 20061002
  14. RIVOTRIL [Concomitant]
     Dates: start: 20061003, end: 20061003
  15. RIVOTRIL [Concomitant]
     Dates: start: 20061004, end: 20061004
  16. DIPIRONA                           /00039503/ [Concomitant]
     Indication: ANALGESIC THERAPY
     Dates: start: 20061002
  17. ENALAPRIL MALEATE [Concomitant]
     Indication: BLOOD PRESSURE
     Dates: start: 20050101
  18. AMLODIPINE [Concomitant]
     Indication: BLOOD PRESSURE
     Dates: start: 20050101
  19. SIMVASTATIN [Concomitant]
     Indication: DYSLIPIDAEMIA
     Dates: start: 19900101
  20. BEZAFIBRATE [Concomitant]
     Indication: DYSLIPIDAEMIA
     Dates: start: 19900101
  21. PROPRANOLOL [Concomitant]
     Dates: start: 20061005, end: 20061005
  22. LASIX [Concomitant]
     Indication: POLYURIA
     Dates: start: 20061004, end: 20061005
  23. LASIX [Concomitant]
     Dates: start: 20061007, end: 20061010
  24. DIMORF [Concomitant]
     Indication: ANALGESIC EFFECT
     Route: 042
     Dates: start: 20061002, end: 20061003
  25. DIMORF [Concomitant]
     Route: 042
     Dates: start: 20061008, end: 20061008
  26. PLASIL                             /00041901/ [Concomitant]
     Indication: NAUSEA
     Dates: start: 20061002, end: 20061003
  27. PLASIL                             /00041901/ [Concomitant]
     Dates: start: 20061005, end: 20061005
  28. NOVALGIN [Concomitant]
     Indication: ANALGESIC EFFECT
     Dates: start: 20061002, end: 20061003
  29. NOVALGIN [Concomitant]
     Dates: start: 20061004, end: 20061006
  30. NOVALGIN [Concomitant]
     Dates: start: 20061007, end: 20061007
  31. NOVALGIN [Concomitant]
     Dates: start: 20061009, end: 20061009
  32. SYLADOR [Concomitant]
     Indication: ANALGESIC EFFECT
     Dates: start: 20061002, end: 20061003
  33. SYLADOR [Concomitant]
     Dates: start: 20061004, end: 20061004
  34. SYLADOR [Concomitant]
     Dates: start: 20061005, end: 20061005
  35. SYLADOR [Concomitant]
     Dates: start: 20061006, end: 20061006
  36. VICTRIX [Concomitant]
     Indication: PROPHYLAXIS AGAINST GASTROINTESTINAL ULCER
     Dates: start: 20061003, end: 20061010
  37. HALDOL [Concomitant]
     Indication: SOMNOLENCE
     Dates: start: 20061004, end: 20061004
  38. SELOKEN [Concomitant]
     Indication: BLOOD PRESSURE
     Dates: start: 20061004, end: 20061004
  39. ATLANSIL [Concomitant]
     Indication: ARRHYTHMIA
     Dates: start: 20061004, end: 20061004
  40. ATLANSIL [Concomitant]
     Dates: start: 20061010, end: 20061010
  41. CAPOTEN [Concomitant]
     Dates: start: 20061005, end: 20061005
  42. CAPOTEN [Concomitant]
     Dates: start: 20061006, end: 20061006
  43. SLOW-K [Concomitant]
     Indication: HYPERKALAEMIA
     Dates: start: 20061005, end: 20061006
  44. FENOZAM [Concomitant]
     Indication: BRONCHIAL DISORDER
     Dates: start: 20061005, end: 20061005
  45. ATROVENT [Concomitant]
     Indication: BRONCHIAL DISORDER
     Dates: start: 20061005, end: 20061005
  46. TRIDIL [Concomitant]
     Indication: VASODILATATION
     Dates: start: 20061005, end: 20061005
  47. QUELICIN [Concomitant]
     Indication: MUSCLE RELAXANT THERAPY
     Dates: start: 20061005, end: 20061005
  48. DORMIRE [Concomitant]
     Dates: start: 20061005, end: 20061005
  49. DORMONID [Concomitant]
     Indication: SEDATION
     Dates: start: 20061005, end: 20061010
  50. FENTANYL [Concomitant]
     Indication: ANALGESIC EFFECT
     Dates: start: 20061005, end: 20061006
  51. FENTANYL [Concomitant]
     Dates: start: 20061007, end: 20061008
  52. FENTANYL [Concomitant]
     Dates: start: 20061010, end: 20061010
  53. NOREPHEDRINE [Concomitant]
     Indication: HYPOTENSION
     Dates: start: 20061005, end: 20061005
  54. NOREPHEDRINE [Concomitant]
     Dates: start: 20061007, end: 20061007
  55. NOREPHEDRINE [Concomitant]
     Dates: start: 20061010, end: 20061010
  56. DOBUTAMINE HCL [Concomitant]
     Indication: CARDIOVASCULAR DISORDER
     Dates: start: 20061006, end: 20061007
  57. DOBUTAMINE HCL [Concomitant]
     Dates: start: 20061008, end: 20061008
  58. DOBUTAMINE HCL [Concomitant]
     Dates: start: 20061010, end: 20061010
  59. RENITEC                            /00574901/ [Concomitant]
     Indication: BLOOD PRESSURE
     Dates: start: 20061001, end: 20061001
  60. NORVASC [Concomitant]
     Indication: BLOOD PRESSURE
     Dates: start: 20061009, end: 20061009
  61. PAVULON [Concomitant]
     Indication: MUSCLE RELAXANT THERAPY
     Dates: start: 20061010, end: 20061010
  62. EPINEPHRINE [Concomitant]
     Indication: CARDIOVASCULAR DISORDER
     Dates: start: 20061010, end: 20061010
  63. ATROPINE [Concomitant]
     Indication: CARDIOVASCULAR DISORDER
     Dates: start: 20061010, end: 20061010

REACTIONS (5)
  - HAEMORRHAGE [None]
  - POST PROCEDURAL HAEMORRHAGE [None]
  - RESPIRATORY DISTRESS [None]
  - SEPTIC SHOCK [None]
  - SYSTEMIC INFLAMMATORY RESPONSE SYNDROME [None]
